FAERS Safety Report 4520715-4 (Version None)
Quarter: 2004Q4

REPORT INFORMATION
  Report Type: 
  Country: None (occurrence: None)
  Receive Date: 20041207
  Receipt Date: 20041201
  Transmission Date: 20050328
  Serious: Yes (Other)
  Sender: FDA-Public Use
  Company Number: US-MERCK-0412USA00289

PATIENT

DRUGS (1)
  1. VIOXX [Suspect]
     Route: 048
     Dates: start: 20000816, end: 20000914

REACTIONS (3)
  - ADVERSE EVENT [None]
  - CEREBROVASCULAR ACCIDENT [None]
  - INJURY [None]
